FAERS Safety Report 4684462-0 (Version None)
Quarter: 2005Q2

REPORT INFORMATION
  Report Type: 
  Country: None (occurrence: None)
  Receive Date: 20050606
  Receipt Date: 20050524
  Transmission Date: 20051028
  Serious: Yes (Disabling, Congenital Anomaly)
  Sender: FDA-Public Use
  Company Number: GXKR2005DE01110

PATIENT
  Sex: 0

DRUGS (1)
  1. IBUPROFEN [Suspect]
     Dosage: TRANSPLACENTAL
     Route: 064

REACTIONS (14)
  - APGAR SCORE LOW [None]
  - CAESAREAN SECTION [None]
  - CARDIAC FAILURE [None]
  - CARDIOMEGALY [None]
  - CONGENITAL HEART VALVE DISORDER [None]
  - CONGENITAL PULMONARY VALVE DISORDER [None]
  - DRUG EXPOSURE DURING PREGNANCY [None]
  - DUCTUS ARTERIOSUS STENOSIS FOETAL [None]
  - HEART DISEASE CONGENITAL [None]
  - HYPERTROPHIC CARDIOMYOPATHY [None]
  - PREMATURE BABY [None]
  - PULMONARY VALVE INCOMPETENCE [None]
  - TRICUSPID VALVE INCOMPETENCE [None]
  - VENTRICULAR HYPERTROPHY [None]
